FAERS Safety Report 8223468-1 (Version None)
Quarter: 2012Q1

REPORT INFORMATION
  Report Type: 
  Country: None (occurrence: None)
  Receive Date: 20120321
  Receipt Date: 20120309
  Transmission Date: 20120608
  Serious: Yes (Hospitalization)
  Sender: FDA-Public Use
  Company Number: US-BAYER-2011-081933

PATIENT
  Age: 19 Year
  Sex: Female
  Weight: 97.506 kg

DRUGS (9)
  1. CLONAZEPAM [Concomitant]
     Indication: ANXIETY
     Dosage: 0.5 MG, QD
     Dates: start: 20070601, end: 20091201
  2. YASMIN [Suspect]
     Indication: MENSTRUATION IRREGULAR
  3. YASMIN [Suspect]
     Indication: PREMENSTRUAL SYNDROME
     Dosage: 1 HS
     Route: 048
     Dates: start: 20040722, end: 20071028
  4. RISPERDAL [Concomitant]
  5. GABAPENTIN [Concomitant]
  6. LAMICTAL [Concomitant]
     Dosage: 50 MG, UNK
     Route: 048
  7. KLONOPIN [Concomitant]
     Dosage: UNK UNK, BID
     Route: 048
  8. INVEGA [Concomitant]
     Dosage: 3 MG, HS
     Route: 048
  9. ZOLOFT [Concomitant]
     Indication: DEPRESSION
     Dosage: 100 MG, QD
     Route: 048
     Dates: start: 20031101, end: 20080201

REACTIONS (12)
  - INJURY [None]
  - DIZZINESS [None]
  - EMOTIONAL DISTRESS [None]
  - DYSPNOEA [None]
  - PULMONARY EMBOLISM [None]
  - ASTHENIA [None]
  - THROMBOSIS [None]
  - FEAR [None]
  - VENA CAVA THROMBOSIS [None]
  - NAUSEA [None]
  - DECREASED APPETITE [None]
  - CHEST PAIN [None]
